FAERS Safety Report 10556516 (Version 2)
Quarter: 2014Q4

REPORT INFORMATION
  Report Type: Other
  Country: US (occurrence: US)
  Receive Date: 20141031
  Receipt Date: 20141031
  Transmission Date: 20150529
  Serious: Yes (Hospitalization, Other)
  Sender: FDA-Public Use
  Company Number: US-GSKPPD-2014GSK003161

PATIENT
  Age: 48 Year
  Sex: Female

DRUGS (4)
  1. AVANDIA [Suspect]
     Active Substance: ROSIGLITAZONE MALEATE
     Indication: DIABETES MELLITUS
     Route: 048
     Dates: start: 2001, end: 2003
  2. METOPROLOL [Concomitant]
     Active Substance: METOPROLOL
     Dates: start: 200310
  3. UNIVASC [Concomitant]
     Active Substance: MOEXIPRIL HYDROCHLORIDE
     Dates: start: 200310
  4. ECOTRIN [Concomitant]
     Active Substance: ASPIRIN
     Dates: start: 200310

REACTIONS (3)
  - Sinus tachycardia [Recovered/Resolved]
  - Cardiac failure congestive [Unknown]
  - Chest pain [Recovered/Resolved]

NARRATIVE: CASE EVENT DATE: 20010215
